FAERS Safety Report 5326145-X (Version None)
Quarter: 2007Q2

REPORT INFORMATION
  Report Type: 
  Country: None (occurrence: None)
  Receive Date: 20070510
  Receipt Date: 20070430
  Transmission Date: 20071010
  Serious: Yes (Hospitalization)
  Sender: FDA-Public Use
  Company Number: 155817USA

PATIENT
  Sex: Female

DRUGS (1)
  1. COPAXONE [Suspect]
     Indication: MULTIPLE SCLEROSIS
     Dosage: 20MG; SUBCUTANEOUS
     Route: 058
     Dates: start: 20011119, end: 20020430

REACTIONS (2)
  - RASH GENERALISED [None]
  - TOXIC SHOCK SYNDROME [None]
